FAERS Safety Report 9465533 (Version 2)
Quarter: 2013Q3

REPORT INFORMATION
  Report Type: Spontaneous
  Country: CA (occurrence: CA)
  Receive Date: 20130820
  Receipt Date: 20130820
  Transmission Date: 20140515
  Serious: Yes (Other)
  Sender: FDA-Public Use
  Company Number: CA-ROCHE-1261965

PATIENT
  Sex: Male
  Weight: 98.9 kg

DRUGS (4)
  1. RITUXAN [Suspect]
     Indication: CHRONIC LYMPHOCYTIC LEUKAEMIA
     Dosage: 6 INFUSIONS EVERY 4 WEEKS
     Route: 042
     Dates: start: 2011
  2. ATENOLOL [Concomitant]
  3. ALLOPURINOL [Concomitant]
  4. JANUMET [Concomitant]

REACTIONS (3)
  - Nephrolithiasis [Recovered/Resolved]
  - Chronic lymphocytic leukaemia recurrent [Not Recovered/Not Resolved]
  - Weight decreased [Not Recovered/Not Resolved]
